FAERS Safety Report 6571260-6 (Version None)
Quarter: 2010Q1

REPORT INFORMATION
  Report Type: 
  Country: None (occurrence: None)
  Receive Date: 20100129
  Receipt Date: 20100115
  Transmission Date: 20100710
  Serious: Yes (Hospitalization)
  Sender: FDA-Public Use
  Company Number: 2010SP000214

PATIENT
  Sex: Male

DRUGS (1)
  1. OMNARIS [Suspect]
     Dosage: NASAL
     Route: 045
     Dates: start: 20091130, end: 20091209

REACTIONS (11)
  - BALANCE DISORDER [None]
  - BONE PAIN [None]
  - DRY EYE [None]
  - HYPOAESTHESIA ORAL [None]
  - INFECTION [None]
  - INNER EAR DISORDER [None]
  - NO THERAPEUTIC RESPONSE [None]
  - OEDEMA [None]
  - PARAESTHESIA ORAL [None]
  - TINNITUS [None]
  - VERTIGO [None]
